FAERS Safety Report 13795063 (Version 1)
Quarter: 2017Q3

REPORT INFORMATION
  Report Type: Spontaneous
  Country: PT (occurrence: PT)
  Receive Date: 20170726
  Receipt Date: 20170726
  Transmission Date: 20171127
  Serious: Yes (Hospitalization, Other)
  Sender: FDA-Public Use
  Company Number: PT-MYLANLABS-2017M1043093

PATIENT

DRUGS (1)
  1. AMIODARONE [Suspect]
     Active Substance: AMIODARONE
     Indication: ATRIAL FIBRILLATION
     Dosage: UNK

REACTIONS (7)
  - Dehydration [Unknown]
  - Cognitive disorder [Recovered/Resolved]
  - Tachycardia [Unknown]
  - Pyrexia [Recovered/Resolved]
  - Hyperthyroidism [Recovered/Resolved]
  - Hypotension [Unknown]
  - Diarrhoea [Recovered/Resolved]
